FAERS Safety Report 15493585 (Version 1)
Quarter: 2018Q4

REPORT INFORMATION
  Report Type: Spontaneous
  Country: IE (occurrence: IE)
  Receive Date: 20181012
  Receipt Date: 20181012
  Transmission Date: 20190205
  Serious: Yes (Hospitalization, Other)
  Sender: FDA-Public Use
  Company Number: IE-ALEXION PHARMACEUTICALS INC.-A201813357

PATIENT
  Age: 19 Year
  Sex: Female

DRUGS (5)
  1. ENOXAPARIN [Concomitant]
     Active Substance: ENOXAPARIN
     Indication: ANTICOAGULANT THERAPY
     Dosage: UNK
     Route: 065
     Dates: start: 201801
  2. SOLIRIS [Suspect]
     Active Substance: ECULIZUMAB
     Dosage: 1200 MG, QW
     Route: 042
     Dates: start: 201808
  3. PENCILLIN [Concomitant]
     Active Substance: PENICILLIN
     Dosage: 333 MG, BID
     Route: 065
     Dates: start: 201609
  4. SOLIRIS [Suspect]
     Active Substance: ECULIZUMAB
     Indication: PAROXYSMAL NOCTURNAL HAEMOGLOBINURIA
     Dosage: UNK
     Route: 065
     Dates: start: 201509
  5. SOLIRIS [Suspect]
     Active Substance: ECULIZUMAB
     Dosage: 900 MG, UNK
     Route: 042
     Dates: start: 201609

REACTIONS (14)
  - Rash macular [Unknown]
  - Sepsis [Unknown]
  - Influenza [Unknown]
  - Jaundice [Unknown]
  - Abdominal pain [Unknown]
  - Influenza like illness [Unknown]
  - Haemolysis [Unknown]
  - Pyrexia [Unknown]
  - Anaemia [Unknown]
  - Incorrect dose administered [Unknown]
  - Headache [Unknown]
  - Hypotension [Unknown]
  - Gonococcal infection [Unknown]
  - Upper respiratory tract infection [Unknown]

NARRATIVE: CASE EVENT DATE: 201609
